FAERS Safety Report 14682505 (Version 1)
Quarter: 2018Q1

REPORT INFORMATION
  Report Type: Spontaneous
  Country: CZ (occurrence: CZ)
  Receive Date: 20180327
  Receipt Date: 20180327
  Transmission Date: 20180509
  Serious: Yes (Other)
  Sender: FDA-Public Use
  Company Number: CZ-AUROBINDO-AUR-APL-2018-016088

PATIENT
  Age: 51 Year
  Sex: Male

DRUGS (3)
  1. GLIMEPIRIDE. [Suspect]
     Active Substance: GLIMEPIRIDE
     Dosage: 4 MG, QD
     Route: 065
     Dates: start: 2005
  2. GLIMEPIRIDE. [Suspect]
     Active Substance: GLIMEPIRIDE
     Indication: PRODUCT USED FOR UNKNOWN INDICATION
     Dosage: 2 MG, QD
     Route: 065
  3. METFORMIN [Concomitant]
     Active Substance: METFORMIN HYDROCHLORIDE
     Indication: PRODUCT USED FOR UNKNOWN INDICATION
     Dosage: 100 MG, QD
     Route: 065

REACTIONS (1)
  - Diabetic metabolic decompensation [Recovered/Resolved]
